FAERS Safety Report 20986920 (Version 1)
Quarter: 2022Q2

REPORT INFORMATION
  Report Type: Spontaneous
  Country: CN (occurrence: CN)
  Receive Date: 20220621
  Receipt Date: 20220621
  Transmission Date: 20220721
  Serious: Yes (Other)
  Sender: FDA-Public Use
  Company Number: CN-PFIZER INC-PV202200004976

PATIENT
  Age: 8 Year
  Sex: Female
  Weight: 28.5 kg

DRUGS (1)
  1. METHYLPREDNISOLONE [Suspect]
     Active Substance: METHYLPREDNISOLONE
     Indication: Systemic lupus erythematosus
     Dosage: 12 MG, 3X/DAY
     Route: 048
     Dates: start: 20220310, end: 20220525

REACTIONS (3)
  - Idiopathic intracranial hypertension [Recovered/Resolved]
  - Intraocular pressure increased [Recovered/Resolved]
  - Headache [Recovering/Resolving]

NARRATIVE: CASE EVENT DATE: 20220517
